FAERS Safety Report 5638944-5 (Version None)
Quarter: 2008Q1

REPORT INFORMATION
  Report Type: 
  Country: None (occurrence: None)
  Receive Date: 20080225
  Receipt Date: 20080225
  Transmission Date: 20080703
  Serious: Yes (Other)
  Sender: FDA-Public Use
  Company Number: None

PATIENT
  Age: 54 Year
  Sex: Female
  Weight: 95.2554 kg

DRUGS (1)
  1. CHANTIX [Suspect]
     Indication: SMOKING CESSATION THERAPY
     Dates: start: 20071013, end: 20080129

REACTIONS (5)
  - ASTHENIA [None]
  - MENTAL DISORDER [None]
  - MUSCULAR WEAKNESS [None]
  - SUICIDAL IDEATION [None]
  - UNEVALUABLE EVENT [None]
